FAERS Safety Report 15421407 (Version 1)
Quarter: 2018Q3

REPORT INFORMATION
  Report Type: Spontaneous
  Country: US (occurrence: US)
  Receive Date: 20180924
  Receipt Date: 20180924
  Transmission Date: 20181010
  Serious: No
  Sender: FDA-Public Use
  Company Number: US-ALLERGAN-1764761US

PATIENT
  Sex: Female

DRUGS (1)
  1. LINZESS [Suspect]
     Active Substance: LINACLOTIDE
     Indication: CONSTIPATION
     Dosage: 290 ?G, SINGLE
     Route: 048

REACTIONS (3)
  - Prescription drug used without a prescription [Unknown]
  - Diarrhoea [Recovered/Resolved]
  - Anorectal discomfort [Unknown]
